FAERS Safety Report 7584252-5 (Version None)
Quarter: 2011Q2

REPORT INFORMATION
  Report Type: 
  Country: None (occurrence: None)
  Receive Date: 20110630
  Receipt Date: 20110621
  Transmission Date: 20111010
  Serious: Yes (Hospitalization)
  Sender: FDA-Public Use
  Company Number: B0729461A

PATIENT
  Sex: Male

DRUGS (4)
  1. OFATUMUMAB [Suspect]
     Indication: CHRONIC LYMPHOCYTIC LEUKAEMIA
     Dosage: 1000MG CUMULATIVE DOSE
     Route: 042
     Dates: start: 20110530
  2. DESAMETASONE [Concomitant]
     Dosage: 40MG PER DAY
     Route: 042
     Dates: start: 20110617
  3. BENDAMUSTINE [Suspect]
     Indication: CHRONIC LYMPHOCYTIC LEUKAEMIA
     Dosage: 68MG CUMULATIVE DOSE
     Route: 042
     Dates: start: 20110531
  4. PREDNISONE [Concomitant]
     Dosage: 50MG PER DAY
     Route: 048
     Dates: start: 20110613, end: 20110617

REACTIONS (2)
  - HYPERURICAEMIA [None]
  - HYPERCALCAEMIA [None]
